FAERS Safety Report 11878261 (Version 1)
Quarter: 2015Q4

REPORT INFORMATION
  Report Type: Spontaneous
  Country: NL (occurrence: NL)
  Receive Date: 20151230
  Receipt Date: 20151230
  Transmission Date: 20160305
  Serious: Yes (Other)
  Sender: FDA-Public Use
  Company Number: NL-TEVA-620677ACC

PATIENT
  Age: 56 Year
  Sex: Male

DRUGS (6)
  1. FLUOROURACIL INFUUS [Concomitant]
     Active Substance: FLUOROURACIL
     Dosage: AS PART OF FOLFOX/AVASTIN
     Route: 042
  2. AVASTIN INFVLST CONC 25MG/ML FLACON  4ML [Concomitant]
     Dosage: AS PART OF FOLFOX/AVASTIN
     Route: 042
  3. ONDANSETRON INJVLST 2MG/ML [Concomitant]
     Dosage: PRE-MEDICATION, 8 MG
     Route: 065
  4. DEXAMETHASON INJVLST  4MG/ML (BASE) [Concomitant]
     Dosage: PRE-MEDICATION, 8 MG
     Route: 065
  5. OXALIPLATINE INFUUS [Suspect]
     Active Substance: OXALIPLATIN
     Indication: RECTAL CANCER
     Dosage: ONCE EVERY 3 WEEKS, AS PART OF FOLFOX (FOLINIC ACID/FLUOROURACIL/OXALIPLATIN)/
     Route: 042
     Dates: start: 201508, end: 20151216
  6. FOLINEZUUR INJVLST 10MG/ML [Concomitant]
     Dosage: AS PART OF FOLFOX/AVASTIN
     Route: 065

REACTIONS (1)
  - Haemolysis [Recovered/Resolved]

NARRATIVE: CASE EVENT DATE: 20151216
